FAERS Safety Report 24222826 (Version 2)
Quarter: 2025Q2

REPORT INFORMATION
  Report Type: Spontaneous
  Country: US (occurrence: US)
  Receive Date: 20240819
  Receipt Date: 20250630
  Transmission Date: 20250716
  Serious: Yes (Other)
  Sender: BAYER HEALTHCARE PHARMACEUTICALS INC.
  Company Number: US-BAYER-2024A117839

PATIENT
  Age: 19 Year
  Sex: Female

DRUGS (1)
  1. MIRENA [Suspect]
     Active Substance: LEVONORGESTREL
     Indication: Contraception
     Dosage: 20?G/DAY
     Route: 015
     Dates: start: 20240521, end: 20240524

REACTIONS (4)
  - Pregnancy with contraceptive device [None]
  - Abortion spontaneous [None]
  - Contraindicated device used [None]
  - Medical device monitoring error [None]

NARRATIVE: CASE EVENT DATE: 20240524
